FAERS Safety Report 22760821 (Version 4)
Quarter: 2025Q1

REPORT INFORMATION
  Report Type: Spontaneous
  Country: US (occurrence: US)
  Receive Date: 20230728
  Receipt Date: 20250127
  Transmission Date: 20250409
  Serious: No
  Sender: SANOFI AVENTIS
  Company Number: US-SA-SAC20230725001398

PATIENT
  Sex: Male
  Weight: 97.73 kg

DRUGS (8)
  1. DUPIXENT [Suspect]
     Active Substance: DUPILUMAB
     Indication: Dermatitis atopic
     Dosage: 300 MG, QOW
     Route: 058
     Dates: start: 202210
  2. DUPIXENT [Suspect]
     Active Substance: DUPILUMAB
     Dosage: 300 MG, QOW
     Route: 058
     Dates: start: 20240122
  3. SINGULAIR [Concomitant]
     Active Substance: MONTELUKAST SODIUM
     Dosage: UNK, QD
     Route: 048
  4. BETAMETHASONE DIPROPIONATE [Concomitant]
     Active Substance: BETAMETHASONE DIPROPIONATE
  5. KETOCONAZOLE [Concomitant]
     Active Substance: KETOCONAZOLE
  6. HYDROCORTISONE [Concomitant]
     Active Substance: HYDROCORTISONE
  7. PREDNISONE [Concomitant]
     Active Substance: PREDNISONE
     Route: 048
  8. TACROLIMUS [Concomitant]
     Active Substance: TACROLIMUS

REACTIONS (15)
  - Injection site swelling [Unknown]
  - Arthropathy [Not Recovered/Not Resolved]
  - Hyperhidrosis [Unknown]
  - Actinic keratosis [Unknown]
  - Lentigo [Unknown]
  - Photodermatosis [Unknown]
  - Post inflammatory pigmentation change [Unknown]
  - Melanocytic naevus [Unknown]
  - Skin lesion [Unknown]
  - Neoplasm skin [Unknown]
  - Seborrhoeic keratosis [Unknown]
  - Seborrhoeic dermatitis [Unknown]
  - Acrochordon [Unknown]
  - Therapeutic response shortened [Unknown]
  - Dermatitis atopic [Unknown]
